FAERS Safety Report 23463974 (Version 1)
Quarter: 2024Q1

REPORT INFORMATION
  Report Type: Spontaneous
  Country: NO (occurrence: NO)
  Receive Date: 20240201
  Receipt Date: 20240201
  Transmission Date: 20240409
  Serious: Yes (Life-Threatening, Hospitalization)
  Sender: FDA-Public Use
  Company Number: None

PATIENT
  Age: 86 Year
  Sex: Female

DRUGS (9)
  1. XARELTO [Suspect]
     Active Substance: RIVAROXABAN
     Indication: Atrial fibrillation
     Dosage: 20 MG, QD
     Route: 048
  2. VITAMIN B12 [Concomitant]
     Active Substance: CYANOCOBALAMIN
  3. IMDUR [Concomitant]
     Active Substance: ISOSORBIDE MONONITRATE
  4. NITROLINGUAL [Concomitant]
     Active Substance: NITROGLYCERIN
     Dosage: 0.4 MG
  5. LOSARTAN KRKA [LOSARTAN] [Concomitant]
  6. HYDROXYCHLOROQUINE [Concomitant]
     Active Substance: HYDROXYCHLOROQUINE
  7. IMOVANE [Concomitant]
     Active Substance: ZOPICLONE
     Dosage: 3.75 MG
  8. CALCIUM CARBONATE\CHOLECALCIFEROL [Concomitant]
     Active Substance: CALCIUM CARBONATE\CHOLECALCIFEROL
  9. SIMVASTATIN [Concomitant]
     Active Substance: SIMVASTATIN

REACTIONS (8)
  - Post procedural complication [Recovering/Resolving]
  - Procedural complication [Recovering/Resolving]
  - Acute myocardial infarction [Recovering/Resolving]
  - Shock haemorrhagic [Recovering/Resolving]
  - Transfusion [Recovering/Resolving]
  - Blood loss anaemia [Recovering/Resolving]
  - Traumatic haematoma [Recovering/Resolving]
  - Traumatic shock [Recovering/Resolving]

NARRATIVE: CASE EVENT DATE: 20231231
